FAERS Safety Report 8221652-4 (Version None)
Quarter: 2012Q1

REPORT INFORMATION
  Report Type: 
  Country: None (occurrence: None)
  Receive Date: 20120320
  Receipt Date: 20120313
  Transmission Date: 20120608
  Serious: Yes (Other)
  Sender: FDA-Public Use
  Company Number: PT-JNJFOC-20120306926

PATIENT

DRUGS (5)
  1. DOXORUBICIN HCL [Suspect]
     Indication: HODGKIN'S DISEASE
     Route: 042
  2. NEUPOGEN [Suspect]
     Indication: PROPHYLAXIS
     Route: 065
  3. BLEOMYCIN SULFATE [Suspect]
     Indication: HODGKIN'S DISEASE
     Route: 065
  4. VINBLASTINE SULFATE [Suspect]
     Indication: HODGKIN'S DISEASE
     Route: 065
  5. DACARBAZINE [Suspect]
     Indication: HODGKIN'S DISEASE
     Route: 065

REACTIONS (1)
  - ADVERSE EVENT [None]
